FAERS Safety Report 24226960 (Version 2)
Quarter: 2024Q4

REPORT INFORMATION
  Report Type: Report from Study
  Country: US (occurrence: US)
  Receive Date: 20240820
  Receipt Date: 20241007
  Transmission Date: 20250115
  Serious: Yes (Other)
  Sender: AMGEN
  Company Number: US-AMGEN-HZN-2024-000441

PATIENT
  Age: 65 Year
  Sex: Female
  Weight: 73.469 kg

DRUGS (15)
  1. TEPEZZA [Suspect]
     Active Substance: TEPROTUMUMAB-TRBW
     Indication: Endocrine ophthalmopathy
     Dosage: 1472 MILLIGRAM, FIRST INFUSION
     Route: 042
     Dates: start: 20231214
  2. TEPEZZA [Suspect]
     Active Substance: TEPROTUMUMAB-TRBW
     Dosage: 1538 MILLIGRAM, SECOND INFUSION
     Route: 042
     Dates: start: 20240104
  3. TEPEZZA [Suspect]
     Active Substance: TEPROTUMUMAB-TRBW
     Dosage: 1494 MILLIGRAM, THIRD INFUSION
     Route: 042
     Dates: start: 20240124
  4. TEPEZZA [Suspect]
     Active Substance: TEPROTUMUMAB-TRBW
     Dosage: 1506 MILLIGRAM, FOURTH INFUSION
     Route: 042
     Dates: start: 20240214
  5. TEPEZZA [Suspect]
     Active Substance: TEPROTUMUMAB-TRBW
     Dosage: 1494 MILLIGRAM, FIFTH INFUSION
     Route: 042
     Dates: start: 20240306
  6. TEPEZZA [Suspect]
     Active Substance: TEPROTUMUMAB-TRBW
     Dosage: 1510 MILLIGRAM, SIXTH INFUSION
     Route: 042
     Dates: start: 20240327
  7. TEPEZZA [Suspect]
     Active Substance: TEPROTUMUMAB-TRBW
     Dosage: 1474 MILLIGRAM, SEVENTH INFUSION
     Route: 042
     Dates: start: 20240417
  8. TEPEZZA [Suspect]
     Active Substance: TEPROTUMUMAB-TRBW
     Dosage: 90 MINS INFUSION, EIGHTH INFUSION
     Route: 042
     Dates: start: 20240508, end: 20240508
  9. ATORVASTATIN [Concomitant]
     Active Substance: ATORVASTATIN
     Dosage: UNK
  10. LOSARTAN [Concomitant]
     Active Substance: LOSARTAN
     Dosage: UNK
  11. DULOXETINE [Concomitant]
     Active Substance: DULOXETINE
     Dosage: UNK
  12. NAPROXEN [Concomitant]
     Active Substance: NAPROXEN
     Dosage: UNK
  13. ASCORBIC ACID [Concomitant]
     Active Substance: ASCORBIC ACID
     Dosage: UNK
  14. CHOLECALCIFEROL [Concomitant]
     Active Substance: CHOLECALCIFEROL
     Dosage: UNK
  15. SODIUM CHLORIDE [Concomitant]
     Active Substance: SODIUM CHLORIDE
     Dosage: UNK

REACTIONS (9)
  - Exophthalmos [Not Recovered/Not Resolved]
  - Salivary gland cancer [Unknown]
  - Sjogren^s syndrome [Unknown]
  - Migraine [Unknown]
  - Abdominal discomfort [Recovered/Resolved]
  - Abdominal pain upper [Unknown]
  - Disorientation [Recovered/Resolved]
  - Incorrect product administration duration [Unknown]
  - Diarrhoea [Recovered/Resolved]

NARRATIVE: CASE EVENT DATE: 20240101
